FAERS Safety Report 18203853 (Version 1)
Quarter: 2020Q3

REPORT INFORMATION
  Report Type: Spontaneous
  Country: US (occurrence: US)
  Receive Date: 20200827
  Receipt Date: 20200827
  Transmission Date: 20201103
  Serious: No
  Sender: FDA-Public Use
  Company Number: US-BIOGEN-2020BI00915230

PATIENT
  Sex: Female

DRUGS (1)
  1. TECFIDERA [Suspect]
     Active Substance: DIMETHYL FUMARATE
     Indication: MULTIPLE SCLEROSIS
     Route: 048
     Dates: start: 20160801

REACTIONS (5)
  - Memory impairment [Unknown]
  - Arthritis [Unknown]
  - Erythema [Recovered/Resolved]
  - Urinary incontinence [Unknown]
  - Feeling hot [Recovered/Resolved]
